FAERS Safety Report 14229390 (Version 4)
Quarter: 2018Q2

REPORT INFORMATION
  Report Type: Report from Study
  Country: DE (occurrence: DE)
  Receive Date: 20171128
  Receipt Date: 20180629
  Transmission Date: 20180711
  Serious: Yes (Other)
  Sender: FDA-Public Use
  Company Number: DE-ROCHE-2025899

PATIENT
  Sex: Female

DRUGS (2)
  1. TRASTUZUMAB. [Suspect]
     Active Substance: TRASTUZUMAB
     Indication: HER-2 POSITIVE BREAST CANCER
     Route: 042
  2. PACLITAXEL. [Suspect]
     Active Substance: PACLITAXEL
     Indication: HER-2 POSITIVE BREAST CANCER
     Route: 042

REACTIONS (8)
  - Infection [Unknown]
  - Infusion related reaction [Unknown]
  - Anaemia [Unknown]
  - Cardiac failure [Unknown]
  - Hypersensitivity [Unknown]
  - Neutropenia [Unknown]
  - Neuropathy peripheral [Unknown]
  - Pulmonary toxicity [Unknown]
